FAERS Safety Report 10599019 (Version 3)
Quarter: 2015Q1

REPORT INFORMATION
  Report Type: Spontaneous
  Country: NL (occurrence: NL)
  Receive Date: 20141121
  Receipt Date: 20150122
  Transmission Date: 20150720
  Serious: Yes (Death, Hospitalization)
  Sender: FDA-Public Use
  Company Number: NL-SA-2014SA156738

PATIENT
  Age: 65 Year
  Sex: Female

DRUGS (16)
  1. CALCIUM GLUCONATE. [Concomitant]
     Active Substance: CALCIUM GLUCONATE
     Route: 042
     Dates: start: 20130214
  2. OXALIPLATIN. [Suspect]
     Active Substance: OXALIPLATIN
     Indication: GASTRIC POLYPS
     Dosage: 1E COURSE
     Route: 042
     Dates: start: 20130214, end: 20130215
  3. CAPECITABINE. [Suspect]
     Active Substance: CAPECITABINE
     Indication: GASTRIC POLYPS
     Dosage: STRENGTH 500 MG?2E COURSE
     Route: 048
     Dates: start: 20130307, end: 20130311
  4. ONDANSETRON [Concomitant]
     Active Substance: ONDANSETRON
     Route: 042
     Dates: start: 20130214
  5. DEXAMETHASONE. [Concomitant]
     Active Substance: DEXAMETHASONE
     Route: 051
     Dates: start: 20130214
  6. EPIRUBICIN [Suspect]
     Active Substance: EPIRUBICIN
     Indication: GASTRIC POLYPS
     Dosage: 2E COURSE
     Route: 042
     Dates: start: 20130307, end: 20130308
  7. ONDANSETRON [Concomitant]
     Active Substance: ONDANSETRON
     Route: 048
     Dates: start: 20130204
  8. ANASTROZOLE. [Concomitant]
     Active Substance: ANASTROZOLE
     Dosage: 1 DF/DAY
  9. EPIRUBICIN [Suspect]
     Active Substance: EPIRUBICIN
     Indication: GASTRIC POLYPS
     Dosage: 1E COURSE
     Route: 042
     Dates: start: 20130214, end: 20130215
  10. LOPERAMIDE [Concomitant]
     Active Substance: LOPERAMIDE
     Route: 048
     Dates: start: 20130311
  11. PANTOPRAZOLE [Concomitant]
     Active Substance: PANTOPRAZOLE SODIUM
  12. FERROUS FUMARATE [Concomitant]
     Active Substance: FERROUS FUMARATE
  13. MAGNESIUM SULFATE. [Concomitant]
     Active Substance: MAGNESIUM SULFATE
     Route: 042
     Dates: start: 20130214
  14. OXALIPLATIN. [Suspect]
     Active Substance: OXALIPLATIN
     Indication: GASTRIC POLYPS
     Dosage: 2E COURSE
     Route: 042
     Dates: start: 20130307, end: 20130308
  15. PRIMPERAN [Concomitant]
     Active Substance: METOCLOPRAMIDE HYDROCHLORIDE
     Route: 048
     Dates: start: 20130102
  16. CAPECITABINE. [Suspect]
     Active Substance: CAPECITABINE
     Indication: GASTRIC POLYPS
     Dosage: STRENGTH: 500 MG?1E COURSE
     Route: 048
     Dates: start: 20130214, end: 20130307

REACTIONS (15)
  - Neutropenia [Unknown]
  - Pulmonary oedema [Fatal]
  - Mucosal inflammation [Fatal]
  - Tracheitis [Fatal]
  - Bronchitis [Fatal]
  - Enteritis [Fatal]
  - Spleen disorder [Fatal]
  - Multi-organ failure [Fatal]
  - Febrile neutropenia [Unknown]
  - Intestinal ulcer [Fatal]
  - Intestinal haemorrhage [Fatal]
  - Ascites [Fatal]
  - Sepsis [Fatal]
  - Colitis [Fatal]
  - Product use issue [Unknown]

NARRATIVE: CASE EVENT DATE: 2013
